FAERS Safety Report 12180801 (Version 1)
Quarter: 2016Q1

REPORT INFORMATION
  Report Type: Spontaneous
  Country: US (occurrence: US)
  Receive Date: 20160315
  Receipt Date: 20160315
  Transmission Date: 20160526
  Serious: Yes (Other)
  Sender: FDA-Public Use
  Company Number: US-BAYER-2016-045217

PATIENT
  Age: 18 Year
  Sex: Female
  Weight: 63.49 kg

DRUGS (1)
  1. MIDOL COMPLETE [Suspect]
     Active Substance: ACETAMINOPHEN\CAFFEINE\PYRILAMINE MALEATE
     Indication: DYSMENORRHOEA

REACTIONS (2)
  - Suicide attempt [None]
  - Intentional overdose [None]

NARRATIVE: CASE EVENT DATE: 20160304
